FAERS Safety Report 5786821-1 (Version None)
Quarter: 2008Q2

REPORT INFORMATION
  Report Type: 
  Country: None (occurrence: None)
  Receive Date: 20080618
  Receipt Date: 20080528
  Transmission Date: 20081010
  Serious: Yes (Disabling)
  Sender: FDA-Public Use
  Company Number: 2008S1009089

PATIENT
  Age: 60 Year
  Sex: Female

DRUGS (6)
  1. PRAVASTATIN [Suspect]
  2. ATORVASTATIN CALCIUM [Suspect]
  3. SIMVASTATIN [Suspect]
  4. IMMUNE GLOBULIN (IMMUNOGLOBULIN) [Concomitant]
  5. AZATHIOPRINE [Concomitant]
  6. METHOTREXATE [Concomitant]

REACTIONS (1)
  - POLYMYOSITIS [None]
